FAERS Safety Report 7789071-2 (Version None)
Quarter: 2011Q3

REPORT INFORMATION
  Report Type: 
  Country: None (occurrence: None)
  Receive Date: 20110930
  Receipt Date: 20110929
  Transmission Date: 20111222
  Serious: Yes (Other)
  Sender: FDA-Public Use
  Company Number: CA-JNJFOC-20110805812

PATIENT
  Sex: Female
  Weight: 86 kg

DRUGS (5)
  1. REMICADE [Suspect]
     Indication: CROHN'S DISEASE
     Route: 042
     Dates: start: 20110809
  2. LODOXAMIDE TROMETHAMINE [Concomitant]
  3. VITAMIN D W/ CALCIUM [Concomitant]
  4. IRON [Concomitant]
  5. PREDNISONE [Concomitant]
     Dosage: 8 CAPS IN ONE DAY IN DECREASING DOSES SINCE AUG 2004.

REACTIONS (7)
  - SENSE OF OPPRESSION [None]
  - CHOKING SENSATION [None]
  - MALAISE [None]
  - INFUSION RELATED REACTION [None]
  - COUGH [None]
  - HEART RATE INCREASED [None]
  - FEELING HOT [None]
